FAERS Safety Report 4958051-4 (Version None)
Quarter: 2006Q1

REPORT INFORMATION
  Report Type: 
  Country: None (occurrence: None)
  Receive Date: 20060330
  Receipt Date: 20060324
  Transmission Date: 20060701
  Serious: Yes (Hospitalization)
  Sender: FDA-Public Use
  Company Number: IT-MERCK-0603ITA00043

PATIENT
  Age: 67 Year
  Sex: Female

DRUGS (3)
  1. ZOCOR [Suspect]
     Indication: DYSLIPIDAEMIA
     Route: 048
     Dates: start: 20051001, end: 20060311
  2. NIFEDIPINE [Concomitant]
     Route: 065
  3. CALCIFEDIOL [Concomitant]
     Route: 065

REACTIONS (3)
  - BLOOD CREATINE PHOSPHOKINASE INCREASED [None]
  - MYOGLOBIN BLOOD INCREASED [None]
  - RHABDOMYOLYSIS [None]
